FAERS Safety Report 6921591-2 (Version None)
Quarter: 2010Q3

REPORT INFORMATION
  Report Type: 
  Country: None (occurrence: None)
  Receive Date: 20100812
  Receipt Date: 20100805
  Transmission Date: 20110219
  Serious: Yes (Death, Hospitalization, Other)
  Sender: FDA-Public Use
  Company Number: JP-RB-008355-07

PATIENT
  Sex: Male

DRUGS (5)
  1. LEPETAN INJECTION [Suspect]
     Dosage: UNKNOWN DOSING DETAILS
     Route: 042
  2. LEPETAN INJECTION [Suspect]
     Route: 042
     Dates: start: 20060814
  3. LEPETAN INJECTION [Suspect]
     Indication: PRODUCT USED FOR UNKNOWN INDICATION
     Dosage: 4.2 TO 4.8 MG/DAILY
     Route: 042
     Dates: start: 20090201
  4. LEPETAN INJECTION [Suspect]
     Indication: PROCTALGIA
     Route: 042
  5. LEPETAN INJECTION [Suspect]
     Dosage: 1.2 MG TO 1.5 MG DAILY
     Route: 040
     Dates: start: 20060814, end: 20091008

REACTIONS (7)
  - BLOOD PRESSURE DECREASED [None]
  - DRUG DEPENDENCE [None]
  - MALAISE [None]
  - PNEUMONIA [None]
  - PYREXIA [None]
  - RESPIRATORY ARREST [None]
  - SEPTIC SHOCK [None]
